FAERS Safety Report 13039944 (Version 1)
Quarter: 2016Q4

REPORT INFORMATION
  Report Type: Spontaneous
  Country: AU (occurrence: AU)
  Receive Date: 20161219
  Receipt Date: 20161219
  Transmission Date: 20170207
  Serious: Yes (Other)
  Sender: FDA-Public Use
  Company Number: AU-BAYER-2016-234067

PATIENT
  Sex: Female

DRUGS (5)
  1. FOLIC ACID. [Suspect]
     Active Substance: FOLIC ACID
  2. CALTRATE [Suspect]
     Active Substance: CALCIUM CARBONATE
  3. ELEVIT [Suspect]
     Active Substance: FOLIC ACID\IRON\MINERALS\VITAMINS
  4. ASPIRIN. [Suspect]
     Active Substance: ASPIRIN
  5. PREDNISONE. [Suspect]
     Active Substance: PREDNISONE

REACTIONS (1)
  - Cleft palate [None]
